FAERS Safety Report 5723102-6 (Version None)
Quarter: 2008Q2

REPORT INFORMATION
  Report Type: 
  Country: None (occurrence: None)
  Receive Date: 20080430
  Receipt Date: 20080418
  Transmission Date: 20081010
  Serious: Yes (Other)
  Sender: FDA-Public Use
  Company Number: JP-ELI_LILLY_AND_COMPANY-JP200802000991

PATIENT
  Age: 75 Year
  Sex: Male

DRUGS (1)
  1. GEMZAR [Suspect]

REACTIONS (1)
  - CEREBRAL INFARCTION [None]
